FAERS Safety Report 23679072 (Version 1)
Quarter: 2024Q1

REPORT INFORMATION
  Report Type: Report from Study
  Country: US (occurrence: US)
  Receive Date: 20240327
  Receipt Date: 20240327
  Transmission Date: 20240409
  Serious: Yes (Other)
  Sender: FDA-Public Use
  Company Number: US-002147023-NVSC2023US197688

PATIENT
  Age: 71 Year
  Sex: Male
  Weight: 64.399 kg

DRUGS (10)
  1. LAMPRENE [Suspect]
     Active Substance: CLOFAZIMINE
     Indication: Tuberculosis
     Dosage: 100 MG, QD
     Route: 048
     Dates: start: 20230722, end: 20230726
  2. LAMPRENE [Suspect]
     Active Substance: CLOFAZIMINE
     Dosage: 100 MG, QD
     Route: 048
     Dates: start: 20230925
  3. LAMPRENE [Suspect]
     Active Substance: CLOFAZIMINE
     Dosage: 100 MG, QD
     Route: 048
     Dates: end: 20240104
  4. AZITHROMYCIN [Concomitant]
     Active Substance: AZITHROMYCIN
     Indication: Pneumonia
     Dosage: 500 MG, QD
     Route: 065
     Dates: start: 20210326
  5. AZITHROMYCIN [Concomitant]
     Active Substance: AZITHROMYCIN
     Dosage: 500 MG, QD
     Route: 065
     Dates: start: 20230722
  6. RIFABUTIN [Concomitant]
     Active Substance: RIFABUTIN
     Indication: Pneumonia
     Dosage: 150 MG, BID
     Route: 065
     Dates: start: 20230718
  7. RIFABUTIN [Concomitant]
     Active Substance: RIFABUTIN
     Dosage: 300 MG, QD
     Route: 065
     Dates: start: 20230722
  8. MYCOPHENOLIC ACID [Concomitant]
     Active Substance: MYCOPHENOLIC ACID
     Indication: Renal transplant
     Dosage: 250 MG, BID
     Route: 065
  9. MYCOPHENOLIC ACID [Concomitant]
     Active Substance: MYCOPHENOLIC ACID
     Dosage: 200 MILLIGRAM PER MILLILITRE  SUSP. TAKE 1.25 ML BY MOUTH BID
     Route: 048
     Dates: start: 20200818
  10. TACROLIMUS [Concomitant]
     Active Substance: TACROLIMUS
     Indication: Renal transplant
     Dosage: 1 MG, QD
     Route: 065
     Dates: start: 20200818

REACTIONS (14)
  - Bronchiectasis [Unknown]
  - Pericardial effusion [Unknown]
  - Pneumomediastinum [Unknown]
  - Polycystic liver disease [Unknown]
  - Fatigue [Recovered/Resolved]
  - Decreased appetite [Not Recovered/Not Resolved]
  - Abdominal distension [Not Recovered/Not Resolved]
  - Epistaxis [Recovered/Resolved]
  - Intervertebral disc degeneration [Not Recovered/Not Resolved]
  - Chest discomfort [Recovered/Resolved]
  - Musculoskeletal pain [Not Recovered/Not Resolved]
  - Sinus congestion [Not Recovered/Not Resolved]
  - Tinnitus [Recovered/Resolved]
  - Throat tightness [Not Recovered/Not Resolved]

NARRATIVE: CASE EVENT DATE: 20230722
